FAERS Safety Report 24260511 (Version 1)
Quarter: 2024Q3

REPORT INFORMATION
  Report Type: Spontaneous
  Country: CA (occurrence: CA)
  Receive Date: 20240828
  Receipt Date: 20240828
  Transmission Date: 20241016
  Serious: Yes (Other)
  Sender: SANDOZ
  Company Number: CA-SANDOZ-SDZ2024CA075689

PATIENT
  Age: 51 Year
  Sex: Male
  Weight: 102 kg

DRUGS (2)
  1. DUTASTERIDE [Suspect]
     Active Substance: DUTASTERIDE
     Indication: Urinary incontinence
     Dosage: 0.5 MG, QD
     Route: 048
  2. TAMSULOSIN [Suspect]
     Active Substance: TAMSULOSIN
     Indication: Urinary incontinence
     Dosage: 0.4 MG, QD, (TABLET (EXTENDED- RELEASE))
     Route: 048

REACTIONS (5)
  - Eye pain [Recovered/Resolved]
  - Proctalgia [Recovered/Resolved]
  - Testicular pain [Recovered/Resolved]
  - Urine abnormality [Recovered/Resolved]
  - Headache [Recovered/Resolved]
